FAERS Safety Report 8742854 (Version 3)
Quarter: 2012Q4

REPORT INFORMATION
  Report Type: 
  Country: US (occurrence: US)
  Receive Date: 20120824
  Receipt Date: 20121127
  Transmission Date: 20130627
  Serious: Yes (Life-Threatening, Hospitalization, Other)
  Sender: FDA-Public Use
  Company Number: US-CELGENEUS-163-21880-12073029

PATIENT
  Age: 82 Year
  Sex: Female

DRUGS (21)
  1. REVLIMID [Suspect]
     Indication: 5Q MINUS MDS
     Dosage: 10 Milligram
     Route: 048
     Dates: start: 20101214
  2. REVLIMID [Suspect]
     Dosage: 10 Milligram
     Route: 048
     Dates: start: 20110311
  3. REVLIMID [Suspect]
     Dosage: 10 Milligram
     Route: 048
     Dates: start: 20120723
  4. COUMADIN [Concomitant]
     Indication: DVT
     Dosage: 2 Milligram
     Route: 048
     Dates: start: 20111216, end: 20120723
  5. LEVOTHYROXINE SODIUM [Concomitant]
     Indication: DRUG USE FOR UNKNOWN INDICATION
     Dosage: 50 Microgram
     Route: 048
     Dates: start: 20081118
  6. TRAZODONE HCL [Concomitant]
     Indication: INSOMNIA
     Dosage: 50 Milligram
     Route: 048
     Dates: start: 20101214, end: 20110314
  7. PROTONIX [Concomitant]
     Indication: DRUG USE FOR UNKNOWN INDICATION
     Dosage: 40 Milligram
     Route: 048
     Dates: start: 20020913, end: 20120730
  8. NITROGLYCERIN [Concomitant]
     Indication: CHEST PAIN
     Dosage: 115.2 Milligram
     Route: 060
     Dates: start: 20031025
  9. FERROUS SULFATE [Concomitant]
     Indication: DRUG USE FOR UNKNOWN INDICATION
     Dosage: 1300 Milligram
     Route: 048
     Dates: start: 20100302, end: 20100525
  10. JANUMET [Concomitant]
     Indication: DRUG USE FOR UNKNOWN INDICATION
     Dosage: 50-500mg
     Route: 048
     Dates: start: 20081118, end: 20111216
  11. OSCAL D [Concomitant]
     Indication: DRUG USE FOR UNKNOWN INDICATION
     Dosage: 500-200mg unit
     Route: 048
     Dates: start: 20081118
  12. OSCAL D [Concomitant]
     Dosage: 500-200mg unit
     Route: 048
     Dates: start: 20120730
  13. ASPIRIN [Concomitant]
     Indication: DRUG USE FOR UNKNOWN INDICATION
     Dosage: 81 Milligram
     Route: 048
     Dates: start: 20100525, end: 20120210
  14. CIPRO [Concomitant]
     Indication: DRUG USE FOR UNKNOWN INDICATION
     Dosage: 1000 Milligram
     Route: 048
     Dates: start: 20120515, end: 20120723
  15. SUCRALFATE [Concomitant]
     Indication: DRUG USE FOR UNKNOWN INDICATION
     Dosage: 4 Gram
     Route: 065
     Dates: start: 20020913, end: 20101214
  16. SUCRALFATE [Concomitant]
     Dosage: 4 Gram
     Route: 065
     Dates: start: 20120730
  17. OMEPRAZOLE [Concomitant]
     Indication: DRUG USE FOR UNKNOWN INDICATION
     Dosage: 20 Milligram
     Route: 048
     Dates: start: 20120730
  18. URECHOLINE [Concomitant]
     Indication: DRUG USE FOR UNKNOWN INDICATION
     Dosage: 6.6667 Milligram
     Route: 048
     Dates: start: 20120730
  19. NORVASC [Concomitant]
     Indication: DRUG USE FOR UNKNOWN INDICATION
     Dosage: 5 Milligram
     Route: 048
     Dates: start: 20120730
  20. LOSARTAN POTASSIUM [Concomitant]
     Indication: DRUG USE FOR UNKNOWN INDICATION
     Dosage: 25 Milligram
     Route: 048
     Dates: start: 20120730
  21. METFORMIN HCL [Concomitant]
     Indication: DRUG USE FOR UNKNOWN INDICATION
     Dosage: 1000 Milligram
     Route: 048
     Dates: start: 20120730

REACTIONS (2)
  - Subdural haematoma [Recovering/Resolving]
  - Fall [Recovering/Resolving]
